FAERS Safety Report 4642110-X (Version None)
Quarter: 2005Q2

REPORT INFORMATION
  Report Type: 
  Country: None (occurrence: None)
  Receive Date: 20050421
  Receipt Date: 20050421
  Transmission Date: 20051028
  Serious: Yes (Death, Life-Threatening, Hospitalization)
  Sender: FDA-Public Use
  Company Number: None

PATIENT
  Sex: Female
  Weight: 109.3169 kg

DRUGS (1)
  1. GEMCITABINE [Suspect]
     Indication: PANCREATIC CARCINOMA
     Dosage: 1000 MG WEEKLY X 3 THEN 1 WK OFF
     Dates: start: 20040908, end: 20050201

REACTIONS (47)
  - ACTIVATED PARTIAL THROMBOPLASTIN TIME ABNORMAL [None]
  - ANURIA [None]
  - ASTHENIA [None]
  - BLISTER [None]
  - BLOOD CREATINE PHOSPHOKINASE ABNORMAL [None]
  - CONFUSIONAL STATE [None]
  - DEHYDRATION [None]
  - DELIRIUM [None]
  - DIALYSIS [None]
  - DIARRHOEA [None]
  - ECCHYMOSIS [None]
  - ENTEROCOCCAL INFECTION [None]
  - EPISTAXIS [None]
  - ESCHAR [None]
  - GENERAL NUTRITION DISORDER [None]
  - GENERAL PHYSICAL HEALTH DETERIORATION [None]
  - GENERALISED OEDEMA [None]
  - HYPERKALAEMIA [None]
  - HYPOALBUMINAEMIA [None]
  - HYPOCALCAEMIA [None]
  - HYPOGLYCAEMIA [None]
  - HYPOTENSION [None]
  - HYPOTHERMIA [None]
  - HYPOVOLAEMIA [None]
  - INTERNATIONAL NORMALISED RATIO ABNORMAL [None]
  - LOSS OF CONSCIOUSNESS [None]
  - MALAISE [None]
  - MUCOUS MEMBRANE DISORDER [None]
  - NEUTROPHIL COUNT ABNORMAL [None]
  - PAIN IN EXTREMITY [None]
  - PANCYTOPENIA [None]
  - PARANEOPLASTIC SYNDROME [None]
  - PROSTRATION [None]
  - RENAL FAILURE ACUTE [None]
  - RENAL TUBULAR NECROSIS [None]
  - SEPSIS [None]
  - SHOCK [None]
  - SKIN NECROSIS [None]
  - SKIN ODOUR ABNORMAL [None]
  - SOMNOLENCE [None]
  - THROMBOTIC THROMBOCYTOPENIC PURPURA [None]
  - TREMOR [None]
  - TROUSSEAU'S SYNDROME [None]
  - ULCER [None]
  - VASCULITIS [None]
  - WOUND INFECTION PSEUDOMONAS [None]
  - WOUND SECRETION [None]
